FAERS Safety Report 4434695-3 (Version None)
Quarter: 2004Q3

REPORT INFORMATION
  Report Type: 
  Country: None (occurrence: None)
  Receive Date: 20040730
  Receipt Date: 20021118
  Transmission Date: 20050211
  Serious: Yes (Other)
  Sender: FDA-Public Use
  Company Number: 2003-11-1141

PATIENT
  Sex: Female

DRUGS (2)
  1. REBETOL [Suspect]
     Dosage: ORAL
     Route: 048
  2. INFERGEN [Suspect]

REACTIONS (1)
  - MYOCARDIAL INFARCTION [None]
